FAERS Safety Report 17816886 (Version 1)
Quarter: 2020Q2

REPORT INFORMATION
  Report Type: Other
  Country: US (occurrence: US)
  Receive Date: 20200522
  Receipt Date: 20200522
  Transmission Date: 20200714
  Serious: No
  Sender: FDA-Public Use
  Company Number: US-FDC LIMITED-2020RIS00017

PATIENT
  Age: 70 Year
  Sex: Female
  Weight: 65.76 kg

DRUGS (11)
  1. TIMOLOL MALEATE. [Suspect]
     Active Substance: TIMOLOL MALEATE
     Indication: GLAUCOMA
     Dosage: 1 DROP, 2X/DAY, IN THE MORNING
     Route: 047
     Dates: start: 20191209, end: 20191209
  2. LUTEIN [Concomitant]
     Active Substance: LUTEIN
  3. POTASSIUM GLUCONATE [Concomitant]
     Active Substance: POTASSIUM GLUCONATE
  4. ASPIRIN. [Concomitant]
     Active Substance: ASPIRIN
  5. LEVOTHYROXINE. [Concomitant]
     Active Substance: LEVOTHYROXINE
  6. NATUREMADE COQ10 [Concomitant]
  7. METFORMIN [Concomitant]
     Active Substance: METFORMIN HYDROCHLORIDE
  8. ROSUVASTATIN CALCIUM. [Concomitant]
     Active Substance: ROSUVASTATIN CALCIUM
  9. TIMOLOL MALEATE (SANDOZ) [Suspect]
     Active Substance: TIMOLOL MALEATE
     Indication: GLAUCOMA
     Dosage: 1 DROP, 2X/DAY IN EACH EYE
     Route: 047
  10. NATUREMADE MULTI FOR HER WITH IRON AND CALCIUM [Concomitant]
  11. TIMOLOL MALEATE. [Suspect]
     Active Substance: TIMOLOL MALEATE
     Dosage: 1 DROP, 2X/DAY, IN THE PM
     Route: 047
     Dates: start: 20191210, end: 20191210

REACTIONS (13)
  - Eyelids pruritus [Not Recovered/Not Resolved]
  - Eye inflammation [Unknown]
  - Swelling of eyelid [Recovering/Resolving]
  - Choking [Recovered/Resolved]
  - Upper-airway cough syndrome [Recovered/Resolved]
  - Eye pruritus [Not Recovered/Not Resolved]
  - Blepharitis [Recovering/Resolving]
  - Eyelid contusion [Unknown]
  - Discomfort [Unknown]
  - Product substitution issue [Recovered/Resolved]
  - Dysphagia [Recovered/Resolved]
  - Dyspnoea [Recovered/Resolved]
  - Product dose omission [Recovered/Resolved]

NARRATIVE: CASE EVENT DATE: 201912
